FAERS Safety Report 4480996-2 (Version None)
Quarter: 2004Q4

REPORT INFORMATION
  Report Type: 
  Country: None (occurrence: None)
  Receive Date: 20041019
  Receipt Date: 20041007
  Transmission Date: 20050328
  Serious: Yes (Hospitalization)
  Sender: FDA-Public Use
  Company Number: A0528972A

PATIENT
  Age: 63 Year
  Sex: Female
  Weight: 66.2705 kg

DRUGS (7)
  1. NICODERM CQ [Suspect]
     Indication: EX-SMOKER
     Dosage: 21 MG PER DAY TRANSDERMAL
     Route: 062
     Dates: start: 19950101
  2. MULTI-VITAMIN [Concomitant]
  3. LORAZEPAM [Concomitant]
  4. TEMAZEPAM [Concomitant]
  5. SENNOSIDES [Concomitant]
  6. AMITRIPTYLINE HCL [Concomitant]
  7. IBUPROFEN [Concomitant]

REACTIONS (6)
  - DRUG TOLERANCE DECREASED [None]
  - LUNG NEOPLASM MALIGNANT [None]
  - PHARMACEUTICAL PRODUCT COMPLAINT [None]
  - PHOTOSENSITIVITY REACTION [None]
  - REFUSAL OF TREATMENT BY PATIENT [None]
  - SKIN CANCER [None]
